FAERS Safety Report 5475009-X (Version None)
Quarter: 2007Q4

REPORT INFORMATION
  Report Type: 
  Country: None (occurrence: None)
  Receive Date: 20071002
  Receipt Date: 20070924
  Transmission Date: 20080405
  Serious: Yes (Other)
  Sender: FDA-Public Use
  Company Number: FR-ASTRAZENECA-2007AC01842

PATIENT
  Age: 13 Year
  Sex: Female

DRUGS (2)
  1. LIDOCAINE [Suspect]
     Indication: NERVE BLOCK
  2. ROPIVACAINE [Suspect]
     Indication: NERVE BLOCK

REACTIONS (1)
  - VENTRICULAR ARRHYTHMIA [None]
